FAERS Safety Report 19736064 (Version 1)
Quarter: 2021Q3

REPORT INFORMATION
  Report Type: Spontaneous
  Country: CN (occurrence: CN)
  Receive Date: 20210823
  Receipt Date: 20210823
  Transmission Date: 20211014
  Serious: Yes (Hospitalization)
  Sender: FDA-Public Use
  Company Number: CN-PFIZER INC-202101050334

PATIENT
  Age: 5 Year
  Sex: Female
  Weight: 17.9 kg

DRUGS (3)
  1. PHARMORUBICIN [Suspect]
     Active Substance: EPIRUBICIN
     Indication: ANAPLASTIC LARGE-CELL LYMPHOMA
     Dosage: 19.3 MG, 1X/DAY
     Route: 041
     Dates: start: 20210715, end: 20210716
  2. METHOTREXATE. [Suspect]
     Active Substance: METHOTREXATE
     Indication: ANAPLASTIC LARGE-CELL LYMPHOMA
     Dosage: 2.855 G, 1X/DAY
     Route: 041
     Dates: start: 20210712, end: 20210712
  3. ENDOXAN [CYCLOPHOSPHAMIDE] [Suspect]
     Active Substance: CYCLOPHOSPHAMIDE
     Indication: ANAPLASTIC LARGE-CELL LYMPHOMA
     Dosage: 0.154 G, 1X/DAY
     Route: 041
     Dates: start: 20210712, end: 20210716

REACTIONS (1)
  - Myelosuppression [Recovering/Resolving]

NARRATIVE: CASE EVENT DATE: 20210724
